FAERS Safety Report 4750459-5 (Version None)
Quarter: 2005Q3

REPORT INFORMATION
  Report Type: 
  Country: None (occurrence: None)
  Receive Date: 20050823
  Receipt Date: 20050817
  Transmission Date: 20060218
  Serious: Yes (Hospitalization)
  Sender: FDA-Public Use
  Company Number: FRPFM-S-20050241

PATIENT
  Age: 3 Year
  Sex: Male

DRUGS (2)
  1. NAVELBINE [Suspect]
     Indication: RHABDOMYOSARCOMA
     Dosage: 25MGM2 PER DAY
     Route: 042
     Dates: end: 20050810
  2. ENDOXAN [Concomitant]
     Dates: end: 20050810

REACTIONS (4)
  - CHEST PAIN [None]
  - COUGH [None]
  - INFUSION RELATED REACTION [None]
  - URTICARIA [None]
